FAERS Safety Report 25139976 (Version 1)
Quarter: 2025Q1

REPORT INFORMATION
  Report Type: Spontaneous
  Country: US (occurrence: US)
  Receive Date: 20250331
  Receipt Date: 20250331
  Transmission Date: 20250408
  Serious: No
  Sender: Haleon PLC
  Company Number: US-HALEON-2235565

PATIENT
  Sex: Female

DRUGS (3)
  1. NICORETTE ORIGINAL [Suspect]
     Active Substance: NICOTINE
     Indication: Product used for unknown indication
     Dates: start: 20250317, end: 20250325
  2. NICORETTE ORIGINAL [Suspect]
     Active Substance: NICOTINE
     Indication: Product used for unknown indication
  3. NICORETTE ORIGINAL [Suspect]
     Active Substance: NICOTINE
     Indication: Product used for unknown indication
     Dates: start: 20250227, end: 20250309

REACTIONS (3)
  - Abdominal discomfort [Unknown]
  - Mouth ulceration [Unknown]
  - Stomatitis [Unknown]
